FAERS Safety Report 11553385 (Version 3)
Quarter: 2015Q4

REPORT INFORMATION
  Report Type: Spontaneous
  Country: US (occurrence: US)
  Receive Date: 20150925
  Receipt Date: 20151119
  Transmission Date: 20160304
  Serious: No
  Sender: FDA-Public Use
  Company Number: US-009507513-1509USA013048

PATIENT
  Age: 72 Year
  Sex: Female

DRUGS (2)
  1. SINEMET [Suspect]
     Active Substance: CARBIDOPA\LEVODOPA
     Indication: TREMOR
     Dosage: 0.5 DF, BID
     Route: 048
     Dates: start: 20150911, end: 20150917
  2. SINEMET [Suspect]
     Active Substance: CARBIDOPA\LEVODOPA
     Dosage: 0.5 DF, TID
     Route: 048
     Dates: start: 20150918

REACTIONS (7)
  - Gait disturbance [Unknown]
  - Diarrhoea [Unknown]
  - Eructation [Unknown]
  - Drug ineffective [Not Recovered/Not Resolved]
  - Peripheral coldness [Unknown]
  - Abdominal discomfort [Unknown]
  - Dizziness [Not Recovered/Not Resolved]

NARRATIVE: CASE EVENT DATE: 2015
